FAERS Safety Report 12080175 (Version 2)
Quarter: 2016Q1

REPORT INFORMATION
  Report Type: Spontaneous
  Country: US (occurrence: US)
  Receive Date: 20160216
  Receipt Date: 20160217
  Transmission Date: 20160526
  Serious: No
  Sender: FDA-Public Use
  Company Number: US-GLAXOSMITHKLINE-US2016GSK018673

PATIENT
  Sex: Female

DRUGS (1)
  1. FLONASE [Suspect]
     Active Substance: FLUTICASONE PROPIONATE
     Indication: SEASONAL ALLERGY
     Dosage: 1 PUFF(S), SINGLE
     Route: 045
     Dates: start: 201004, end: 201004

REACTIONS (7)
  - Dysgeusia [Recovered/Resolved]
  - Ageusia [Recovered/Resolved]
  - Throat irritation [Recovered/Resolved]
  - Weight decreased [Unknown]
  - Nasal discomfort [Recovered/Resolved]
  - Product use issue [Unknown]
  - Oropharyngeal pain [Recovered/Resolved]

NARRATIVE: CASE EVENT DATE: 2010
